FAERS Safety Report 6603445-4 (Version None)
Quarter: 2010Q1

REPORT INFORMATION
  Report Type: 
  Country: None (occurrence: None)
  Receive Date: 20100226
  Receipt Date: 20090601
  Transmission Date: 20100710
  Serious: No
  Sender: FDA-Public Use
  Company Number: A0788012A

PATIENT
  Sex: Female

DRUGS (2)
  1. VALTREX [Suspect]
     Indication: GENITAL HERPES
     Dosage: 1G UNKNOWN
     Route: 048
     Dates: start: 20090529, end: 20090601
  2. NO CONCURRENT MEDICATION [Concomitant]

REACTIONS (5)
  - HYPERSENSITIVITY [None]
  - LOCAL SWELLING [None]
  - OEDEMA PERIPHERAL [None]
  - RASH GENERALISED [None]
  - SWELLING FACE [None]
